FAERS Safety Report 8804583 (Version 3)
Quarter: 2012Q4

REPORT INFORMATION
  Report Type: 
  Country: SE (occurrence: SE)
  Receive Date: 20120924
  Receipt Date: 20121127
  Transmission Date: 20130627
  Serious: Yes (Death, Life-Threatening, Hospitalization)
  Sender: FDA-Public Use
  Company Number: SE-ASTRAZENECA-2012SE73268

PATIENT
  Age: 78 Year
  Sex: Female

DRUGS (1)
  1. ATACAND [Suspect]
     Route: 048

REACTIONS (5)
  - Angioedema [Fatal]
  - Pyrexia [Fatal]
  - Chest discomfort [Fatal]
  - Dyspnoea [Fatal]
  - Cough [Fatal]
